FAERS Safety Report 7320278-4 (Version None)
Quarter: 2011Q1

REPORT INFORMATION
  Report Type: 
  Country: None (occurrence: None)
  Receive Date: 20110228
  Receipt Date: 20110224
  Transmission Date: 20110831
  Serious: No
  Sender: FDA-Public Use
  Company Number: US-PFIZER INC-2011041083

PATIENT
  Sex: Female
  Weight: 73.923 kg

DRUGS (6)
  1. CELEBREX [Suspect]
     Indication: ARTHRALGIA
     Dosage: 200 MG, DAILY
     Route: 048
     Dates: start: 20110223
  2. IBUPROFEN [Concomitant]
     Dosage: 800 MG, UNK
  3. LISINOPRIL [Concomitant]
     Indication: HYPERTENSION
     Dosage: UNK
  4. ESTRADIOL [Concomitant]
     Dosage: UNK
  5. SOMA [Concomitant]
     Dosage: UNK
  6. PROMETHAZINE [Concomitant]
     Dosage: UNK

REACTIONS (1)
  - ABDOMINAL DISCOMFORT [None]
